FAERS Safety Report 10039078 (Version 1)
Quarter: 2014Q1

REPORT INFORMATION
  Report Type: Spontaneous
  Country: RU (occurrence: RU)
  Receive Date: 20140326
  Receipt Date: 20140326
  Transmission Date: 20141002
  Serious: Yes (Life-Threatening, Hospitalization, Other)
  Sender: FDA-Public Use
  Company Number: RU-BAYER-2014-043451

PATIENT
  Age: 24 Year
  Sex: Female
  Weight: 88 kg

DRUGS (2)
  1. YAZ PLUS [Suspect]
     Indication: HYPERANDROGENISM
     Dosage: UNK
     Dates: start: 201309, end: 20140307
  2. YAZ PLUS [Suspect]
     Indication: METABOLIC SYNDROME

REACTIONS (9)
  - Pulmonary embolism [Recovering/Resolving]
  - Cor pulmonale acute [Recovering/Resolving]
  - Osteochondrosis [Recovering/Resolving]
  - Pain in extremity [Recovering/Resolving]
  - Back pain [Recovering/Resolving]
  - Myocarditis [Recovering/Resolving]
  - Dyspnoea [Recovering/Resolving]
  - Respiratory tract infection viral [None]
  - Body temperature increased [None]
